FAERS Safety Report 5352040-6 (Version None)
Quarter: 2007Q2

REPORT INFORMATION
  Report Type: 
  Country: None (occurrence: None)
  Receive Date: 20070611
  Receipt Date: 20070530
  Transmission Date: 20071010
  Serious: Yes (Hospitalization)
  Sender: FDA-Public Use
  Company Number: HQWYE234616MAY07

PATIENT
  Sex: Male
  Weight: 127.12 kg

DRUGS (7)
  1. PROTONIX [Suspect]
     Indication: DYSPEPSIA
     Route: 048
     Dates: start: 20070502, end: 20070508
  2. IBUPROFEN [Concomitant]
     Route: 048
     Dates: start: 20070502
  3. VYTORIN [Concomitant]
     Dosage: UNKNOWN
     Route: 048
  4. SIMVASTATIN [Concomitant]
     Dosage: UNKNOWN
     Route: 048
     Dates: end: 20070517
  5. TEMAZEPAM [Concomitant]
     Dosage: 15 MG UNKNOWN FREQUENCY
     Route: 048
  6. LUNESTA [Suspect]
     Indication: INSOMNIA
     Dosage: 3 MG HS; 5 OUT OF THE 7 EVENINGS
     Route: 048
     Dates: start: 20070502, end: 20070508
  7. AGGRENOX [Concomitant]
     Dosage: UNKNOWN DOSE BID
     Route: 048

REACTIONS (1)
  - LACUNAR INFARCTION [None]
